FAERS Safety Report 9714642 (Version 1)
Quarter: 2013Q4

REPORT INFORMATION
  Report Type: Spontaneous
  Country: DE (occurrence: DE)
  Receive Date: 20131126
  Receipt Date: 20131126
  Transmission Date: 20140711
  Serious: Yes (Other)
  Sender: FDA-Public Use
  Company Number: DE-PFIZER INC-2013335184

PATIENT
  Sex: Female

DRUGS (1)
  1. DEPO-CLINOVIR [Suspect]
     Dosage: UNK

REACTIONS (1)
  - Helicobacter infection [Unknown]
